FAERS Safety Report 9922460 (Version 1)
Quarter: 2014Q1

REPORT INFORMATION
  Report Type: Spontaneous
  Country: US (occurrence: None)
  Receive Date: 20140224
  Receipt Date: 20140224
  Transmission Date: 20141002
  Serious: Yes (Other)
  Sender: FDA-Public Use
  Company Number: None

PATIENT
  Age: 36 Year
  Sex: Female
  Weight: 42.18 kg

DRUGS (1)
  1. CIMZIA 400 MG UCB PHARMA [Suspect]
     Indication: CROHN^S DISEASE
     Dosage: 2 SHOTS EVERY 2 WEEKS GIVEN INTO/UNDER THE SKIN
     Dates: start: 20140128, end: 20140210

REACTIONS (1)
  - Rash [None]
